FAERS Safety Report 15976990 (Version 1)
Quarter: 2019Q1

REPORT INFORMATION
  Report Type: Spontaneous
  Country: FR (occurrence: FR)
  Receive Date: 20190218
  Receipt Date: 20190218
  Transmission Date: 20190418
  Serious: Yes (Death, Hospitalization, Other)
  Sender: FDA-Public Use
  Company Number: FR-PSITEAM-TSR2006001223

PATIENT

DRUGS (10)
  1. ZOPHREN                            /00955302/ [Concomitant]
     Active Substance: ONDANSETRON
     Indication: PROPHYLAXIS OF NAUSEA AND VOMITING
     Dosage: 8.0MG UNKNOWN
     Route: 042
     Dates: start: 20051107, end: 20051107
  2. ZOLADEX [Suspect]
     Active Substance: GOSERELIN ACETATE
     Dosage: 10.8 MILLIGRAM, Q3 MONTHS
     Route: 058
     Dates: start: 200311
  3. ZOLADEX [Suspect]
     Active Substance: GOSERELIN ACETATE
     Dosage: 10.8 MILLIGRAM, Q3 MONTHS
     Route: 058
     Dates: start: 20050105
  4. ZOLADEX [Suspect]
     Active Substance: GOSERELIN ACETATE
     Indication: PROSTATE CANCER
     Dosage: 10.8 MILLIGRAM, Q3 MONTHS
     Route: 058
     Dates: start: 200412
  5. ACTRAPID [Concomitant]
     Active Substance: INSULIN HUMAN
     Indication: PRODUCT USED FOR UNKNOWN INDICATION
     Dosage: UNK
     Route: 065
  6. GRANISETRON [Concomitant]
     Active Substance: GRANISETRON
     Indication: PROPHYLAXIS OF NAUSEA AND VOMITING
     Dosage: UNK
     Route: 065
     Dates: start: 20051123, end: 20051123
  7. MUPHORAN [Suspect]
     Active Substance: FOTEMUSTINE
     Indication: MALIGNANT MELANOMA
     Dosage: 126 MILLIGRAM, QD
     Route: 042
     Dates: start: 20051107, end: 20051107
  8. MUPHORAN [Suspect]
     Active Substance: FOTEMUSTINE
     Dosage: UNK
     Route: 042
     Dates: start: 20051116, end: 20051116
  9. MUPHORAN [Suspect]
     Active Substance: FOTEMUSTINE
     Dosage: 130 MILLIGRAM, UNK
     Route: 042
     Dates: start: 20051123
  10. LANTUS [Concomitant]
     Active Substance: INSULIN GLARGINE
     Indication: DIABETES MELLITUS
     Dosage: 28 INTERNATIONAL UNIT, QD
     Route: 065

REACTIONS (1)
  - Dermatomyositis [Fatal]

NARRATIVE: CASE EVENT DATE: 20051116
